FAERS Safety Report 4407220-0 (Version None)
Quarter: 2004Q3

REPORT INFORMATION
  Report Type: 
  Country: None (occurrence: None)
  Receive Date: 20040721
  Receipt Date: 20040706
  Transmission Date: 20050211
  Serious: Yes (Hospitalization, Other)
  Sender: FDA-Public Use
  Company Number: US_000950618

PATIENT
  Age: 81 Year
  Sex: Female
  Weight: 60 kg

DRUGS (11)
  1. HUMALOG [Suspect]
     Indication: DIABETES MELLITUS
     Dosage: 15 U/L IN THE MORNING
     Dates: start: 20000601
  2. HUMALOG [Suspect]
     Indication: DIABETES MELLITUS
     Dosage: 10 U/L IN THE EVENING
     Dates: start: 20010101
  3. HUMULIN N [Suspect]
     Indication: DIABETES MELLITUS
     Dosage: 5 U/L AT BEDTIME
     Dates: start: 20000601
  4. LIPITOR [Concomitant]
  5. CLONIDINE HCL [Concomitant]
  6. ZEBETA [Concomitant]
  7. ASPIRIN [Concomitant]
  8. LANOXIN [Concomitant]
  9. NIFEDIPINE [Concomitant]
  10. HCT (HYDROCHLOROTHIAZIDE) [Concomitant]
  11. LANTUS [Concomitant]

REACTIONS (12)
  - BLOOD GLUCOSE DECREASED [None]
  - BLOOD GLUCOSE INCREASED [None]
  - COMA [None]
  - DIZZINESS [None]
  - HYPERGLYCAEMIA [None]
  - HYPERHIDROSIS [None]
  - INJECTION SITE HAEMORRHAGE [None]
  - LOSS OF CONSCIOUSNESS [None]
  - MEDICATION ERROR [None]
  - NERVOUSNESS [None]
  - PERICARDITIS [None]
  - PHARMACEUTICAL PRODUCT COMPLAINT [None]
